FAERS Safety Report 9073705 (Version 1)
Quarter: 2013Q1

REPORT INFORMATION
  Report Type: Report from Study
  Country: US (occurrence: US)
  Receive Date: 20130129
  Receipt Date: 20130129
  Transmission Date: 20140127
  Serious: No
  Sender: FDA-Public Use
  Company Number: US-ABBOTT-12P-163-0915576-00

PATIENT
  Age: 23 Year
  Sex: Male

DRUGS (6)
  1. HUMIRA 40 MG/0.8 ML PEN [Suspect]
     Indication: CROHN^S DISEASE
     Dosage: 160MG ON 29 FEB 2012
     Route: 058
     Dates: start: 20120229
  2. HUMIRA 40 MG/0.8 ML PEN [Suspect]
  3. METHOTREXATE [Concomitant]
     Indication: CROHN^S DISEASE
     Dosage: 10MG WEEKLY
  4. FOLIC ACID [Concomitant]
     Indication: CROHN^S DISEASE
     Dosage: DAILY
  5. WELCHOL [Concomitant]
     Indication: CROHN^S DISEASE
     Dosage: DAILY
  6. VITAMIN D [Concomitant]
     Indication: CROHN^S DISEASE
     Dosage: DAILY

REACTIONS (2)
  - Animal bite [Recovered/Resolved]
  - Wound complication [Recovered/Resolved]
